FAERS Safety Report 5475147-1 (Version None)
Quarter: 2007Q4

REPORT INFORMATION
  Report Type: 
  Country: None (occurrence: None)
  Receive Date: 20071002
  Receipt Date: 20070924
  Transmission Date: 20080405
  Serious: Yes (Other)
  Sender: FDA-Public Use
  Company Number: US-PFIZER INC-2007043152

PATIENT
  Sex: Female
  Weight: 90 kg

DRUGS (1)
  1. CELEBREX [Suspect]
     Indication: ARTHRALGIA
     Dates: start: 20020909, end: 20030101

REACTIONS (4)
  - ARTHRALGIA [None]
  - CEREBROVASCULAR DISORDER [None]
  - FALL [None]
  - MYOCARDIAL INFARCTION [None]
